FAERS Safety Report 8618222-2 (Version None)
Quarter: 2012Q3

REPORT INFORMATION
  Report Type: 
  Country: None (occurrence: None)
  Receive Date: 20120824
  Receipt Date: 20120815
  Transmission Date: 20120928
  Serious: Yes (Other)
  Sender: FDA-Public Use
  Company Number: GB-AMGEN-GBRCT2012052601

PATIENT
  Age: 28 Year
  Sex: Female
  Weight: 68.4 kg

DRUGS (3)
  1. LEVOTHYROXINE SODIUM [Concomitant]
     Dosage: UNK
     Dates: start: 20040615
  2. ETANERCEPT [Suspect]
     Indication: PRODUCT USED FOR UNKNOWN INDICATION
     Dosage: 50 MG, QWK
     Dates: start: 20100112
  3. LOPERAMIDE HCL [Concomitant]
     Dosage: UNK
     Dates: start: 20060615

REACTIONS (1)
  - BASAL CELL CARCINOMA [None]
